FAERS Safety Report 13303846 (Version 1)
Quarter: 2017Q1

REPORT INFORMATION
  Report Type: Report from Study
  Country: GB (occurrence: GB)
  Receive Date: 20170307
  Receipt Date: 20170307
  Transmission Date: 20170428
  Serious: Yes (Hospitalization, Other)
  Sender: FDA-Public Use
  Company Number: GB-AMGEN-GBRCT2013086328

PATIENT
  Age: 54 Year
  Sex: Male
  Weight: 156 kg

DRUGS (3)
  1. ETANERCEPT [Suspect]
     Active Substance: ETANERCEPT
     Indication: PSORIATIC ARTHROPATHY
     Dosage: 25 MG, QWK
     Route: 065
     Dates: start: 20071018, end: 20090217
  2. NAPROXEN. [Concomitant]
     Active Substance: NAPROXEN
     Dosage: UNK
     Dates: start: 20080105
  3. ACITRETIN. [Concomitant]
     Active Substance: ACITRETIN
     Dosage: UNK
     Dates: start: 20081104

REACTIONS (3)
  - Cellulitis [Recovered/Resolved]
  - Erythema [Recovered/Resolved]
  - Anal abscess [Recovered/Resolved]

NARRATIVE: CASE EVENT DATE: 20081115
